FAERS Safety Report 7979259-X (Version None)
Quarter: 2011Q4

REPORT INFORMATION
  Report Type: 
  Country: None (occurrence: None)
  Receive Date: 20111201
  Receipt Date: 20111117
  Transmission Date: 20120403
  Serious: Yes (Death, Hospitalization, Other)
  Sender: FDA-Public Use
  Company Number: 2011MA016592

PATIENT
  Sex: Female
  Weight: 71.6683 kg

DRUGS (18)
  1. CELEXA [Concomitant]
  2. LOMOTIL [Concomitant]
  3. LOTRONIEX [Concomitant]
  4. PROTONIX [Concomitant]
  5. LOVENOX [Concomitant]
  6. COUMADIN [Concomitant]
  7. IMODIUM [Concomitant]
  8. DIGOXIN [Suspect]
     Indication: ATRIAL FIBRILLATION
     Dosage: 0.125 MG;QD;PO
     Route: 048
     Dates: start: 20010906, end: 20071101
  9. DIGOXIN [Suspect]
     Indication: CARDIAC FAILURE CONGESTIVE
     Dosage: 0.125 MG;QD;PO
     Route: 048
     Dates: start: 20010906, end: 20071101
  10. DILACOR XR [Concomitant]
  11. ZYPREXA [Concomitant]
  12. COMBIVENT [Concomitant]
  13. LEVBID [Concomitant]
  14. IV FLUIDS [Concomitant]
  15. DILTIAZEM HCL [Concomitant]
  16. OCTREOTIDE ACETATE [Concomitant]
  17. QUESTRAN [Concomitant]
  18. CARDIZEM [Concomitant]

REACTIONS (26)
  - MULTIPLE INJURIES [None]
  - ANXIETY [None]
  - CARDIAC FAILURE CONGESTIVE [None]
  - PAIN [None]
  - STRESS [None]
  - CARDIOMYOPATHY [None]
  - PULMONARY VALVE INCOMPETENCE [None]
  - SKIN IRRITATION [None]
  - GASTROINTESTINAL HAEMORRHAGE [None]
  - MITRAL VALVE INCOMPETENCE [None]
  - TRICUSPID VALVE INCOMPETENCE [None]
  - BRADYCARDIA [None]
  - ECONOMIC PROBLEM [None]
  - NERVOUSNESS [None]
  - SWELLING [None]
  - ARRHYTHMIA [None]
  - VENTRICULAR TACHYCARDIA [None]
  - DYSPNOEA [None]
  - RENAL FAILURE [None]
  - INSOMNIA [None]
  - AORTIC VALVE INCOMPETENCE [None]
  - CARDIOACTIVE DRUG LEVEL DECREASED [None]
  - CARDIOACTIVE DRUG LEVEL INCREASED [None]
  - CARDIAC DISORDER [None]
  - IRRITABILITY [None]
  - DEPRESSION [None]
